FAERS Safety Report 18300584 (Version 1)
Quarter: 2020Q3

REPORT INFORMATION
  Report Type: Spontaneous
  Country: US (occurrence: US)
  Receive Date: 20200922
  Receipt Date: 20200922
  Transmission Date: 20201103
  Serious: Yes (Hospitalization)
  Sender: FDA-Public Use
  Company Number: None

PATIENT
  Age: 58 Year
  Sex: Female

DRUGS (30)
  1. REPATHA [Suspect]
     Active Substance: EVOLOCUMAB
     Indication: HYPERLIPIDAEMIA
     Route: 058
     Dates: start: 20200403
  2. LEVOTHYROXIN [Concomitant]
     Active Substance: LEVOTHYROXINE
  3. MONTELUKAST [Concomitant]
     Active Substance: MONTELUKAST SODIUM
  4. TIZANIDINE. [Concomitant]
     Active Substance: TIZANIDINE
  5. TRAZODONE [Concomitant]
     Active Substance: TRAZODONE HYDROCHLORIDE
  6. FLUCONAZOLE. [Concomitant]
     Active Substance: FLUCONAZOLE
  7. LEVOFLOXACIN. [Concomitant]
     Active Substance: LEVOFLOXACIN
  8. SERTRALINE [Concomitant]
     Active Substance: SERTRALINE HYDROCHLORIDE
  9. SPIRONOLACT [Concomitant]
     Active Substance: SPIRONOLACTONE
  10. DUREZOL [Concomitant]
     Active Substance: DIFLUPREDNATE
  11. FUROSEMIDE. [Concomitant]
     Active Substance: FUROSEMIDE
  12. ILEVRO OP [Concomitant]
  13. NITROGLYCER DIS [Concomitant]
  14. PREDNISONE. [Concomitant]
     Active Substance: PREDNISONE
  15. FLUTICASONE. [Concomitant]
     Active Substance: FLUTICASONE
  16. AMOX/K CLAV [Concomitant]
     Active Substance: AMOXICILLIN\CLAVULANATE POTASSIUM
  17. AZITHROMYCIN ANHYDROUS. [Concomitant]
     Active Substance: AZITHROMYCIN ANHYDROUS
  18. BESIVANCE [Concomitant]
     Active Substance: BESIFLOXACIN
  19. POT CL MICRO ER [Concomitant]
  20. ATORVASTATIN [Concomitant]
     Active Substance: ATORVASTATIN
  21. SPIRIVA [Concomitant]
     Active Substance: TIOTROPIUM BROMIDE MONOHYDRATE
  22. SYMBICORT [Concomitant]
     Active Substance: BUDESONIDE\FORMOTEROL FUMARATE DIHYDRATE
  23. IPRATROPIUM/SOL ALBUTER [Concomitant]
  24. LORATADINE. [Concomitant]
     Active Substance: LORATADINE
  25. LOSARTAN/HCT [Concomitant]
     Active Substance: HYDROCHLOROTHIAZIDE\LOSARTAN POTASSIUM
  26. VENTOLIN HFA [Concomitant]
     Active Substance: ALBUTEROL SULFATE
  27. CEFDINIR. [Concomitant]
     Active Substance: CEFDINIR
  28. JANUVIA [Concomitant]
     Active Substance: SITAGLIPTIN PHOSPHATE
  29. METFORMIN [Concomitant]
     Active Substance: METFORMIN HYDROCHLORIDE
  30. METOPROL TAR [Concomitant]

REACTIONS (4)
  - Infection [None]
  - Oropharyngeal pain [None]
  - Rhinorrhoea [None]
  - Pneumonia [None]

NARRATIVE: CASE EVENT DATE: 20200922
